FAERS Safety Report 12040178 (Version 3)
Quarter: 2016Q3

REPORT INFORMATION
  Report Type: Spontaneous
  Country: US (occurrence: US)
  Receive Date: 20160208
  Receipt Date: 20160724
  Transmission Date: 20161109
  Serious: No
  Sender: FDA-Public Use
  Company Number: US-SHIRE-US201601279

PATIENT
  Sex: Female

DRUGS (2)
  1. BENTYL [Concomitant]
     Active Substance: DICYCLOMINE HYDROCHLORIDE
     Indication: PRODUCT USED FOR UNKNOWN INDICATION
     Dosage: UNK, UNKNOWN
     Route: 065
     Dates: start: 201603
  2. LIALDA [Suspect]
     Active Substance: MESALAMINE
     Indication: PRODUCT USED FOR UNKNOWN INDICATION
     Dosage: UNK, UNKNOWN
     Route: 048
     Dates: start: 201601

REACTIONS (6)
  - Gastrointestinal pain [Unknown]
  - Fatigue [Not Recovered/Not Resolved]
  - Skin exfoliation [Unknown]
  - Pain [Not Recovered/Not Resolved]
  - Dry skin [Unknown]
  - Condition aggravated [Unknown]

NARRATIVE: CASE EVENT DATE: 2016
